FAERS Safety Report 8025930-3 (Version None)
Quarter: 2012Q1

REPORT INFORMATION
  Report Type: 
  Country: None (occurrence: None)
  Receive Date: 20120105
  Receipt Date: 20110902
  Transmission Date: 20120608
  Serious: No
  Sender: FDA-Public Use
  Company Number: US-ABBOTT-11P-163-0851173-00

PATIENT
  Sex: Female

DRUGS (3)
  1. SYNTHROID [Suspect]
     Indication: HYPOTHYROIDISM
  2. METFORMIN HCL [Suspect]
     Indication: POLYCYSTIC OVARIES
     Dosage: 2-500 MG TABLETS TWICE A DAY
     Route: 048
  3. INSULIN [Concomitant]
     Indication: TYPE 1 DIABETES MELLITUS

REACTIONS (1)
  - THYROID FUNCTION TEST ABNORMAL [None]
